FAERS Safety Report 17439558 (Version 1)
Quarter: 2020Q1

REPORT INFORMATION
  Report Type: Spontaneous
  Country: IN (occurrence: IN)
  Receive Date: 20200220
  Receipt Date: 20200220
  Transmission Date: 20200409
  Serious: Yes (Other)
  Sender: FDA-Public Use
  Company Number: IN-MACLEODS PHARMACEUTICALS US LTD-MAC2020025184

PATIENT

DRUGS (6)
  1. OLANZAPINE 5 MG [Suspect]
     Active Substance: OLANZAPINE
     Indication: DEPRESSION
  2. LITHIUM. [Suspect]
     Active Substance: LITHIUM
     Indication: MANIA
     Dosage: 1200 MILLIGRAM, QD
     Route: 065
  3. OLANZAPINE 5 MG [Suspect]
     Active Substance: OLANZAPINE
     Indication: MANIA
     Dosage: 5 MILLIGRAM, QD
     Route: 065
  4. SILDENAFIL 100 MG [Suspect]
     Active Substance: SILDENAFIL
     Indication: ERECTILE DYSFUNCTION
     Dosage: 100 MILLIGRAM, QD
     Route: 065
  5. CARBAMAZEPINE. [Concomitant]
     Active Substance: CARBAMAZEPINE
     Indication: DEPRESSION
     Dosage: 800 MILLIGRAM, QD
     Route: 065
  6. HALOPERIDOL. [Suspect]
     Active Substance: HALOPERIDOL
     Indication: MANIA
     Dosage: 15 MILLIGRAM, QD
     Route: 065

REACTIONS (6)
  - Muscle rigidity [Not Recovered/Not Resolved]
  - Tremor [Not Recovered/Not Resolved]
  - Drug ineffective [Unknown]
  - Priapism [Recovered/Resolved]
  - Erectile dysfunction [Not Recovered/Not Resolved]
  - Akathisia [Not Recovered/Not Resolved]
